FAERS Safety Report 24594600 (Version 3)
Quarter: 2024Q4

REPORT INFORMATION
  Report Type: Spontaneous
  Country: FR (occurrence: FR)
  Receive Date: 20241108
  Receipt Date: 20241219
  Transmission Date: 20250115
  Serious: Yes (Life-Threatening, Hospitalization, Other)
  Sender: GLAXOSMITHKLINE
  Company Number: None

PATIENT

DRUGS (22)
  1. SERETIDE [Suspect]
     Active Substance: FLUTICASONE PROPIONATE\SALMETEROL XINAFOATE
     Indication: Product used for unknown indication
     Dosage: 1 DF, BID; 250/25 ?G/DOSE 1 PUFF MORNING AND EVENING
     Route: 065
  2. ALBUTEROL [Suspect]
     Active Substance: ALBUTEROL
     Indication: Product used for unknown indication
     Dosage: 2 PUFF(S), TID
     Route: 065
  3. QUETIAPINE FUMARATE [Suspect]
     Active Substance: QUETIAPINE FUMARATE
     Indication: Bipolar disorder
     Dosage: 800 MILLIGRAM, 400 MG 2 CPS AT BEDTIME
     Route: 048
     Dates: end: 20240828
  4. HALOPERIDOL [Suspect]
     Active Substance: HALOPERIDOL
     Indication: Bipolar disorder
     Dosage: 10 DROP IN 1 DAY , 10 DROP
     Route: 048
     Dates: start: 20240827, end: 20240827
  5. TERALITHE [Suspect]
     Active Substance: LITHIUM CARBONATE
     Indication: Bipolar disorder
     Dosage: 800 MILLIGRAM, 400 MG 2 CPS AT NIGHT
     Route: 048
     Dates: start: 2018
  6. TERALITHE [Suspect]
     Active Substance: LITHIUM CARBONATE
     Dosage: 800 MG, QD
     Route: 048
     Dates: start: 2024
  7. TERALITHE [Suspect]
     Active Substance: LITHIUM CARBONATE
     Dosage: 600 MG, QD
     Route: 048
     Dates: start: 20240616
  8. TERALITHE [Suspect]
     Active Substance: LITHIUM CARBONATE
     Dosage: 800 MILLIGRAM, THERAPEUTIC WINDOW AND GRADUAL RESUMPTION
     Route: 048
     Dates: start: 20240625
  9. TERALITHE [Suspect]
     Active Substance: LITHIUM CARBONATE
     Dosage: 200 MILLIGRAM, QD
     Route: 048
     Dates: start: 20240905
  10. TERALITHE [Suspect]
     Active Substance: LITHIUM CARBONATE
     Dosage: 400 MILLIGRAM, QD
     Route: 048
     Dates: start: 20240910
  11. LOXAPINE [Suspect]
     Active Substance: LOXAPINE
     Indication: Psychiatric decompensation
     Dosage: 25 MG MORNING, NOON AND 100 MG IN THE EVENING, THEN 50 MG MORNING, NOON AND 100 MG IN THE EVENING SI
     Route: 048
     Dates: start: 20240624, end: 20240827
  12. IMOVANE [Suspect]
     Active Substance: ZOPICLONE
     Indication: Product used for unknown indication
     Dosage: 7.5 MILLIGRAM, 7.5 MG 1 CAP AT BEDTIME
     Route: 065
  13. VALIUM [Suspect]
     Active Substance: DIAZEPAM
     Indication: Product used for unknown indication
     Dosage: 5 MILLIGRAM, QD, 5 MG 1 CAP AT BEDTIME (SINCE 06/2024)
     Route: 065
     Dates: start: 202406
  14. GLUCOPHAGE [Suspect]
     Active Substance: METFORMIN HYDROCHLORIDE
     Indication: Product used for unknown indication
     Dosage: 2000 MG, QD; 1000 MILLIGRAM, BID
     Route: 065
  15. ANETHOLTRITHION [Suspect]
     Active Substance: ANETHOLTRITHION
     Indication: Product used for unknown indication
     Dosage: 1 DF, TID; 1 TABLET MORNING, NOON AND EVENING
     Route: 048
  16. ARTISIAL [Suspect]
     Active Substance: CALCIUM CHLORIDE\MAGNESIUM CHLORIDE\POTASSIUM CHLORIDE\POTASSIUM PHOSPHATE, DIBASIC\POTASSIUM PHOSPH
     Indication: Product used for unknown indication
     Dosage: 2 DF, TID; SPRAY 2 SPRAYS 3X/DAY
     Route: 065
  17. FENOFIBRATE [Suspect]
     Active Substance: FENOFIBRATE
     Indication: Product used for unknown indication
     Dosage: 1 DF, QD
     Route: 065
  18. ACETAMINOPHEN [Suspect]
     Active Substance: ACETAMINOPHEN
     Indication: Product used for unknown indication
     Dosage: 2 DF, TID;2 CPS, 3 TIMES A DAY, IF NECESSARY
     Route: 065
  19. ACETAMINOPHEN [Suspect]
     Active Substance: ACETAMINOPHEN
     Dosage: 1500 MG, QD (500 MILLIGRAM, TID)
     Route: 065
  20. ACETAMINOPHEN [Suspect]
     Active Substance: ACETAMINOPHEN
     Dosage: 1 G, 6D (EVERY 4-6 HOURS)
     Route: 065
  21. TRANSIPEG (PEG3350\ELECTROLYTES) [Suspect]
     Active Substance: POLYETHYLENE GLYCOL 3350\POTASSIUM CHLORIDE\SODIUM BICARBONATE\SODIUM CHLORIDE\SODIUM SULFATE
     Indication: Product used for unknown indication
     Dosage: 2 DF, BID (2 SACHETS MORNING AND MIDDAY)
     Route: 065
  22. POLYETHYLENE GLYCOL 4000 [Suspect]
     Active Substance: POLYETHYLENE GLYCOL 4000
     Indication: Product used for unknown indication
     Dosage: 2 DF, QD (2 SACHETS MORNING AND MIDDAY)
     Route: 065

REACTIONS (6)
  - Neuroleptic malignant syndrome [Recovered/Resolved]
  - Faecaloma [Recovered/Resolved]
  - Impaired gastric emptying [Unknown]
  - Pulmonary embolism [Recovered/Resolved]
  - Extrapyramidal disorder [Recovered/Resolved]
  - Fall [Recovered/Resolved]

NARRATIVE: CASE EVENT DATE: 20240727
